FAERS Safety Report 7710419-9 (Version None)
Quarter: 2011Q3

REPORT INFORMATION
  Report Type: 
  Country: None (occurrence: None)
  Receive Date: 20110825
  Receipt Date: 20110810
  Transmission Date: 20111222
  Serious: Yes (Other)
  Sender: FDA-Public Use
  Company Number: US-ELI_LILLY_AND_COMPANY-US201009007089

PATIENT
  Sex: Female

DRUGS (20)
  1. VITAMIN D [Concomitant]
     Dosage: 1000 U, UNK
  2. SENOKOT [Concomitant]
     Dosage: 8.6-50 MG TAB
  3. LASIX [Concomitant]
     Dosage: 20 MG, UNK
  4. FORTEO [Suspect]
     Indication: OSTEOPOROSIS
     Dosage: 20 UG, DAILY (1/D)
     Route: 058
     Dates: start: 20100716, end: 20100921
  5. ICAPS [Concomitant]
     Dosage: 1 TABLET, DAILY (1/D)
  6. NORCO [Concomitant]
     Dosage: 10/325 MG, 1/2 TO 2 TABLETS EVERY 4 TO 6 HOURS
     Route: 048
  7. OSTEO BI-FLEX [Concomitant]
     Dosage: 2 TABLETS (8.6 MG-50 MG), DAILY (1/D)
  8. TYLENOL (CAPLET) [Concomitant]
     Dosage: 325 MG, UNK
  9. CALCIUM CARBONATE [Concomitant]
     Dosage: 500 MG, UNK
  10. MICARDIS [Concomitant]
     Dosage: 40 MG, UNK
  11. FISH OIL [Concomitant]
     Dosage: 1 TABLET, DAILY (1/D)
  12. LACTASE [Concomitant]
  13. FUROSEMIDE [Concomitant]
  14. ASPIRIN [Concomitant]
     Dosage: 81 MG, UNK
  15. AUGMENTIN '125' [Concomitant]
     Dosage: 500/125 MG, UNKNOWN
  16. AUGMENTIN '125' [Concomitant]
     Dosage: 875 MG-125 MG, UNK
  17. FERROUS SULFATE TAB [Concomitant]
     Dosage: 325 MG, UNK
  18. ZOFRAN [Concomitant]
     Dosage: 4 MG, UNK
  19. PERCOCET [Concomitant]
  20. TAMOXIFEN CITRATE [Concomitant]

REACTIONS (5)
  - CELLULITIS [None]
  - HAEMORRHAGE [None]
  - METASTASES TO LUNG [None]
  - RADIATION SKIN INJURY [None]
  - MALIGNANT FIBROUS HISTIOCYTOMA [None]
